FAERS Safety Report 11018241 (Version 2)
Quarter: 2015Q2

REPORT INFORMATION
  Report Type: Spontaneous
  Country: US (occurrence: US)
  Receive Date: 20150412
  Receipt Date: 20150524
  Transmission Date: 20150821
  Serious: Yes (Hospitalization)
  Sender: FDA-Public Use
  Company Number: US-JNJFOC-20140112969

PATIENT
  Age: 17 Year
  Sex: Male

DRUGS (10)
  1. CYCLOPHOSPHAMIDE. [Suspect]
     Active Substance: CYCLOPHOSPHAMIDE
     Indication: HODGKIN^S DISEASE
     Dosage: AS A PART OF COPP AND ABVE-PC REGIMEN
     Route: 065
  2. BLEOMYCIN [Suspect]
     Active Substance: BLEOMYCIN SULFATE
     Indication: HODGKIN^S DISEASE
     Route: 065
  3. RADIOTHERAPY [Suspect]
     Active Substance: RADIATION THERAPY
     Indication: HODGKIN^S DISEASE
     Dosage: 70.2 GY FOR NASAPHARYNGEAL CARCINOMA AND 21 GY FOR HODGKIN LYMPHOMA
     Route: 065
  4. DOXORUBICIN [Suspect]
     Active Substance: DOXORUBICIN
     Indication: HODGKIN^S DISEASE
     Route: 042
  5. VINCRISTINE [Suspect]
     Active Substance: VINCRISTINE
     Indication: HODGKIN^S DISEASE
     Dosage: PART OF COPP AND ABVE-PC REGIMEN
     Route: 065
  6. PROCARBAZINE [Suspect]
     Active Substance: PROCARBAZINE
     Indication: HODGKIN^S DISEASE
     Route: 065
  7. CISPLATIN. [Suspect]
     Active Substance: CISPLATIN
     Indication: NASOPHARYNGEAL CANCER
     Route: 065
  8. PREDNISONE. [Suspect]
     Active Substance: PREDNISONE
     Indication: HODGKIN^S DISEASE
     Dosage: AS A PART OF COPP AND ABVE-PC REGIMEN
     Route: 065
  9. ETOPOSIDE. [Suspect]
     Active Substance: ETOPOSIDE
     Indication: HODGKIN^S DISEASE
     Route: 065
  10. RADIOTHERAPY [Suspect]
     Active Substance: RADIATION THERAPY
     Indication: NASOPHARYNGEAL CANCER
     Dosage: 70.2 GY FOR NASAPHARYNGEAL CARCINOMA AND 21 GY FOR HODGKIN LYMPHOMA
     Route: 065

REACTIONS (3)
  - Decreased appetite [Unknown]
  - Pyrexia [Unknown]
  - Stomatitis [Unknown]
